FAERS Safety Report 14903987 (Version 1)
Quarter: 2018Q2

REPORT INFORMATION
  Report Type: Spontaneous
  Country: US (occurrence: US)
  Receive Date: 20180516
  Receipt Date: 20180516
  Transmission Date: 20180711
  Serious: No
  Sender: FDA-Public Use
  Company Number: US-COLLEGIUM PHARMACEUTICAL, INC.-2018CGM00023

PATIENT
  Age: 60 Year
  Sex: Male
  Weight: 102.4 kg

DRUGS (3)
  1. XTAMPZA ER [Suspect]
     Active Substance: OXYCODONE
     Indication: ARTHROPATHY
     Dosage: 18 MG, 1X/DAY
     Route: 048
     Dates: start: 20180126, end: 20180127
  2. XTAMPZA ER [Suspect]
     Active Substance: OXYCODONE
     Indication: PAIN
     Dosage: 18 MG, 2X/DAY
     Route: 048
     Dates: start: 20180128, end: 20180202
  3. IBUPROFEN. [Concomitant]
     Active Substance: IBUPROFEN

REACTIONS (5)
  - Heart rate increased [Recovered/Resolved]
  - Inappropriate schedule of drug administration [Recovered/Resolved]
  - Vision blurred [Recovered/Resolved]
  - Diarrhoea [Recovered/Resolved]
  - Insomnia [Recovering/Resolving]

NARRATIVE: CASE EVENT DATE: 2018
